FAERS Safety Report 13913730 (Version 1)
Quarter: 2017Q3

REPORT INFORMATION
  Report Type: Spontaneous
  Country: DE (occurrence: DE)
  Receive Date: 20170829
  Receipt Date: 20170829
  Transmission Date: 20171127
  Serious: Yes (Congenital Anomaly, Other)
  Sender: FDA-Public Use
  Company Number: DE-MYLANLABS-2017M1052435

PATIENT

DRUGS (3)
  1. OSPOLOT [Suspect]
     Active Substance: SULTHIAME
     Indication: EPILEPSY
     Dosage: 300 [MG/D ]
     Route: 064
     Dates: start: 20160109, end: 20161003
  2. LEVETIRACETAM. [Suspect]
     Active Substance: LEVETIRACETAM
     Indication: EPILEPSY
     Dosage: 2250 [MG/D ]/ INCREASED DOSE FROM GESTATIONAL WEEK 4 5/7.
     Route: 064
     Dates: start: 20160109, end: 20161003
  3. BELLA HEXAL [Concomitant]
     Active Substance: CYPROTERONE ACETATE\ETHINYL ESTRADIOL
     Indication: CONTRACEPTION
     Dosage: 0.035 [MG/D ] / 2 [MG/D ]
     Route: 064
     Dates: start: 20160109, end: 20160204

REACTIONS (3)
  - Congenital cyst [Not Recovered/Not Resolved]
  - Foetal exposure during pregnancy [Recovered/Resolved]
  - Small for dates baby [Unknown]

NARRATIVE: CASE EVENT DATE: 20161003
